FAERS Safety Report 23753618 (Version 2)
Quarter: 2024Q4

REPORT INFORMATION
  Report Type: Spontaneous
  Country: US (occurrence: US)
  Receive Date: 20240417
  Receipt Date: 20241014
  Transmission Date: 20250115
  Serious: No
  Sender: Karo Pharma
  Company Number: US-Karo Pharma-2155692

PATIENT
  Age: 43 Year
  Sex: Male

DRUGS (1)
  1. TERBINAFINE [Suspect]
     Active Substance: TERBINAFINE\TERBINAFINE HYDROCHLORIDE
     Indication: Onychomycosis

REACTIONS (1)
  - Drug ineffective [Unknown]
